FAERS Safety Report 5682239-0 (Version None)
Quarter: 2008Q1

REPORT INFORMATION
  Report Type: 
  Country: None (occurrence: None)
  Receive Date: 20080325
  Receipt Date: 20080311
  Transmission Date: 20080703
  Serious: Yes (Other)
  Sender: FDA-Public Use
  Company Number: 2008S1004156

PATIENT
  Age: 40 Year
  Sex: Male

DRUGS (8)
  1. WARFARIN (WARFARIN) DOSE, FORM, ROUTE AND FREQUENCY UNKNOWN; DAILY [Suspect]
     Indication: DRUG USE FOR UNKNOWN INDICATION
  2. ALFUZOSIN (ALFUZOSIN) [Concomitant]
  3. CLOBAZAM (CLOBAZAM) [Concomitant]
  4. VALPROATE SODIUM [Concomitant]
  5. LAMICTAL [Suspect]
     Indication: EPILEPSY
     Dosage: 200 MG;TWICE A DAY
     Route: 048
  6. LANSOPRAZOLE [Concomitant]
  7. RISPERDAL [Concomitant]
  8. TEGRETOL [Concomitant]

REACTIONS (4)
  - COAGULOPATHY [None]
  - DRUG ADMINISTRATION ERROR [None]
  - DRUG INTERACTION [None]
  - INTERNATIONAL NORMALISED RATIO INCREASED [None]
